FAERS Safety Report 16296509 (Version 3)
Quarter: 2020Q3

REPORT INFORMATION
  Report Type: Spontaneous
  Country: US (occurrence: US)
  Receive Date: 20190510
  Receipt Date: 20200804
  Transmission Date: 20201102
  Serious: Yes (Other)
  Sender: FDA-Public Use
  Company Number: US-PFIZER INC-2019197344

PATIENT
  Age: 55 Year
  Sex: Female

DRUGS (1)
  1. LYRICA [Suspect]
     Active Substance: PREGABALIN
     Indication: NERVE COMPRESSION
     Dosage: 75 MG

REACTIONS (6)
  - Mobility decreased [Unknown]
  - Illness [Unknown]
  - Drug dependence [Unknown]
  - Breast cancer recurrent [Unknown]
  - Feeling abnormal [Unknown]
  - Weight increased [Unknown]
